FAERS Safety Report 4996923-5 (Version None)
Quarter: 2006Q2

REPORT INFORMATION
  Report Type: 
  Country: None (occurrence: None)
  Receive Date: 20060505
  Receipt Date: 20060424
  Transmission Date: 20061013
  Serious: Yes (Hospitalization)
  Sender: FDA-Public Use
  Company Number: US-SHR-03-008269

PATIENT
  Age: 54 Year
  Sex: Female
  Weight: 100 kg

DRUGS (11)
  1. BETASERON [Suspect]
     Indication: RELAPSING-REMITTING MULTIPLE SCLEROSIS
     Dosage: 8 MIU, EVERY 2D, SUBCUTANEOUS
     Route: 058
     Dates: start: 19970101
  2. PROZAC [Concomitant]
  3. LASIX [Concomitant]
  4. SINEMET [Concomitant]
  5. MULTIVITAMINS PLUS IRON (FERROUS SULFATE, VITAMINS NOS) [Concomitant]
  6. VITAMIN B12 FOR INJECTION [Concomitant]
  7. ANTIVERT ^PFIZER^ (MECLOZINE HYDROCHLORIDE) [Concomitant]
  8. ASPIRIN [Concomitant]
  9. NAPROSYN [Concomitant]
  10. CALCIUM (CALCIUM) [Concomitant]
  11. POTASSIUM (POTASSIUM) [Concomitant]

REACTIONS (10)
  - ANKLE FRACTURE [None]
  - ARRHYTHMIA [None]
  - BRADYCARDIA [None]
  - CARDIAC ARREST [None]
  - CARDIAC DISORDER [None]
  - CARDIAC PACEMAKER MALFUNCTION [None]
  - DIZZINESS [None]
  - FOOT FRACTURE [None]
  - LIGAMENT INJURY [None]
  - SYNCOPE [None]
